FAERS Safety Report 24416538 (Version 1)
Quarter: 2024Q4

REPORT INFORMATION
  Report Type: Spontaneous
  Country: GB (occurrence: GB)
  Receive Date: 20241009
  Receipt Date: 20241009
  Transmission Date: 20250115
  Serious: Yes (Disabling, Other)
  Sender: BAYER
  Company Number: GB-MHRA-WEBCOVID-202410041846195920-MLHTR

PATIENT
  Age: 63 Year
  Sex: Female

DRUGS (4)
  1. CIPROFLOXACIN [Suspect]
     Active Substance: CIPROFLOXACIN
     Indication: Lower respiratory tract infection
     Route: 048
  2. UNSPECIFIED INGREDIENT [Concomitant]
     Active Substance: UNSPECIFIED INGREDIENT
  3. RAMIPRIL [Concomitant]
     Active Substance: RAMIPRIL
  4. OMEPRAZOLE [Concomitant]
     Active Substance: OMEPRAZOLE

REACTIONS (6)
  - Fatigue [Unknown]
  - Brain fog [Unknown]
  - Diarrhoea haemorrhagic [Not Recovered/Not Resolved]
  - Dysgeusia [Not Recovered/Not Resolved]
  - Illness [Unknown]
  - Decreased appetite [None]
